FAERS Safety Report 5382246-1 (Version None)
Quarter: 2007Q3

REPORT INFORMATION
  Report Type: 
  Country: None (occurrence: None)
  Receive Date: 20070709
  Receipt Date: 20070702
  Transmission Date: 20080115
  Serious: Yes (Death)
  Sender: FDA-Public Use
  Company Number: BR-PFIZER INC-2007054969

PATIENT
  Sex: Female

DRUGS (5)
  1. FRONTAL XR [Suspect]
     Route: 048
  2. CEBRILIN [Concomitant]
     Route: 048
  3. SODIUM [Concomitant]
  4. DOMPERIDONE [Concomitant]
     Route: 048
  5. ALL OTHER THERAPEUTIC PRODUCTS [Concomitant]

REACTIONS (1)
  - SENSORY DISTURBANCE [None]
